FAERS Safety Report 8420647 (Version 2)
Quarter: 2012Q4

REPORT INFORMATION
  Report Type: 
  Country: US (occurrence: US)
  Receive Date: 20120222
  Receipt Date: 20121218
  Transmission Date: 20130627
  Serious: Yes (Death, Hospitalization)
  Sender: FDA-Public Use
  Company Number: US-GLAXOSMITHKLINE-A0933038A

PATIENT
  Age: 84 Year
  Sex: Female

DRUGS (1)
  1. AVANDIA [Suspect]
     Indication: TYPE 2 DIABETES MELLITUS
     Dosage: 4MG Twice per day
     Route: 048
     Dates: end: 20090414

REACTIONS (4)
  - Respiratory failure [Fatal]
  - Acute myocardial infarction [Unknown]
  - Cardio-respiratory arrest [Unknown]
  - Cardiac failure congestive [Unknown]
